FAERS Safety Report 8529486 (Version 4)
Quarter: 2012Q4

REPORT INFORMATION
  Report Type: 
  Country: JP (occurrence: JP)
  Receive Date: 20120425
  Receipt Date: 20120907
  Transmission Date: 20130627
  Serious: Yes (Death, Life-Threatening)
  Sender: FDA-Public Use
  Company Number: JP-ROCHE-1060153

PATIENT
  Age: 71 Year
  Sex: Female
  Weight: 52 kg

DRUGS (7)
  1. AVASTIN [Suspect]
     Indication: COLON CANCER METASTATIC
     Route: 041
     Dates: start: 20120312, end: 20120326
  2. LEVOFOLINATE [Suspect]
     Indication: COLON CANCER METASTATIC
     Route: 041
     Dates: start: 20120227, end: 20120326
  3. ALOXI [Suspect]
     Indication: PROPHYLAXIS
     Route: 041
     Dates: start: 20120312, end: 20120326
  4. IRINOTECAN HYDROCHLORIDE TRIHYDRATE [Concomitant]
     Indication: COLON CANCER METASTATIC
     Route: 041
     Dates: start: 20120227, end: 20120326
  5. 5-FU [Concomitant]
     Indication: COLON CANCER METASTATIC
     Route: 040
     Dates: start: 20120227, end: 20120326
  6. 5-FU [Concomitant]
     Indication: COLON CANCER METASTATIC
     Route: 041
     Dates: start: 20120227, end: 201203
  7. DECADRON [Concomitant]
     Indication: PROPHYLAXIS
     Route: 041
     Dates: start: 20120312, end: 20120326

REACTIONS (5)
  - Large intestine perforation [Recovered/Resolved]
  - Large intestinal ulcer haemorrhage [Unknown]
  - Ileal perforation [Recovered/Resolved]
  - Abdominal abscess [Recovered/Resolved]
  - Disease progression [Fatal]
